FAERS Safety Report 16551735 (Version 1)
Quarter: 2019Q3

REPORT INFORMATION
  Report Type: Spontaneous
  Country: SE (occurrence: SE)
  Receive Date: 20190710
  Receipt Date: 20190710
  Transmission Date: 20191004
  Serious: Yes (Hospitalization)
  Sender: FDA-Public Use
  Company Number: SE-009507513-1907SWE000739

PATIENT
  Age: 45 Year
  Sex: Female

DRUGS (4)
  1. ATARAX [Suspect]
     Active Substance: HYDROXYZINE HYDROCHLORIDE
     Dosage: UNK, 52 PIECES
     Route: 048
     Dates: start: 20190215, end: 20190215
  2. MIRTAZAPINE. [Suspect]
     Active Substance: MIRTAZAPINE
     Dosage: UNK, 100 PIECES
     Route: 048
     Dates: start: 20190215, end: 20190215
  3. LERGIGAN (PROMETHAZINE HYDROCHLORIDE) [Suspect]
     Active Substance: PROMETHAZINE HYDROCHLORIDE
     Dosage: UNK
     Route: 048
     Dates: start: 20190215, end: 20190215
  4. THERALEN [Suspect]
     Active Substance: TRIMEPRAZINE
     Dosage: UNK, 50 PIECES
     Route: 048
     Dates: start: 20190215, end: 20190215

REACTIONS (6)
  - Depressed level of consciousness [Unknown]
  - Electrocardiogram QT prolonged [Unknown]
  - Intentional overdose [Unknown]
  - Hypertension [Unknown]
  - Intentional self-injury [Unknown]
  - Tachycardia [Unknown]

NARRATIVE: CASE EVENT DATE: 20190215
